FAERS Safety Report 11387825 (Version 1)
Quarter: 2015Q3

REPORT INFORMATION
  Report Type: Spontaneous
  Country: FR (occurrence: FR)
  Receive Date: 20150817
  Receipt Date: 20150817
  Transmission Date: 20151125
  Serious: Yes (Other)
  Sender: FDA-Public Use
  Company Number: FR-BAYER-2015-249008

PATIENT
  Age: 82 Year
  Sex: Male
  Weight: 72 kg

DRUGS (5)
  1. STIVARGA [Suspect]
     Active Substance: REGORAFENIB
     Indication: COLON CANCER METASTATIC
     Dosage: 160 MG, QD
     Route: 048
     Dates: start: 20150309, end: 20150503
  2. INNOHEP [TINZAPARIN SODIUM] [Concomitant]
     Indication: PULMONARY EMBOLISM
  3. PANTOPRAZOLE [Concomitant]
     Active Substance: PANTOPRAZOLE SODIUM
     Dosage: 40 MG, QD
     Route: 048
  4. KARDEGIC [Concomitant]
     Active Substance: ASPIRIN LYSINE
     Dosage: 1 DF, QD
     Route: 048
     Dates: end: 20150507
  5. INNOHEP [TINZAPARIN SODIUM] [Concomitant]
     Indication: DEEP VEIN THROMBOSIS
     Dosage: 0.700 ML, QD
     Route: 058

REACTIONS (4)
  - Pain in extremity [Recovered/Resolved]
  - Palmar-plantar erythrodysaesthesia syndrome [None]
  - Muscle haemorrhage [Recovered/Resolved]
  - Gamma-glutamyltransferase increased [None]

NARRATIVE: CASE EVENT DATE: 20150503
